FAERS Safety Report 9229905 (Version 1)
Quarter: 2013Q2

REPORT INFORMATION
  Report Type: Spontaneous
  Country: US (occurrence: None)
  Receive Date: 20130411
  Receipt Date: 20130411
  Transmission Date: 20140414
  Serious: Yes (Hospitalization)
  Sender: FDA-Public Use
  Company Number: 2013-00089

PATIENT
  Age: 64 Year
  Sex: Female

DRUGS (3)
  1. UNSPECIFIED ZICAM PRODUCT [Suspect]
  2. PROGESTERONE [Concomitant]
  3. ESTROGEN [Concomitant]

REACTIONS (2)
  - Convulsion [None]
  - Blood sodium decreased [None]
